FAERS Safety Report 5127468-X (Version None)
Quarter: 2006Q4

REPORT INFORMATION
  Report Type: 
  Country: None (occurrence: None)
  Receive Date: 20061013
  Receipt Date: 20061013
  Transmission Date: 20070319
  Serious: No
  Sender: FDA-Public Use
  Company Number: None

PATIENT
  Age: 16 Year
  Sex: Female

DRUGS (2)
  1. ZOFRAN [Suspect]
     Indication: NAUSEA
     Dosage: 2MG IV X 1
     Route: 042
     Dates: start: 20060607
  2. ZOFRAN [Suspect]
     Indication: VOMITING IN PREGNANCY
     Dosage: 2MG IV X 1
     Route: 042
     Dates: start: 20060607

REACTIONS (4)
  - CHEST DISCOMFORT [None]
  - DYSPNOEA [None]
  - INFUSION RELATED REACTION [None]
  - THROAT TIGHTNESS [None]
